FAERS Safety Report 4953844-1 (Version None)
Quarter: 2006Q1

REPORT INFORMATION
  Report Type: 
  Country: None (occurrence: None)
  Receive Date: 20060321
  Receipt Date: 20060313
  Transmission Date: 20060701
  Serious: Yes (Death, Hospitalization)
  Sender: FDA-Public Use
  Company Number: 163-20785-06010600

PATIENT
  Age: 75 Year
  Sex: Male

DRUGS (8)
  1. THALOMID [Suspect]
     Indication: LUNG NEOPLASM MALIGNANT
     Dosage: 200-250MG, DAILY, ORAL
     Route: 048
     Dates: start: 20051201, end: 20060101
  2. THALOMID [Suspect]
     Indication: METASTASES TO BONE
     Dosage: 200-250MG, DAILY, ORAL
     Route: 048
     Dates: start: 20051201, end: 20060101
  3. THALOMID [Suspect]
     Indication: PROSTATE CANCER METASTATIC
     Dosage: 200-250MG, DAILY, ORAL
     Route: 048
     Dates: start: 20051201, end: 20060101
  4. THALOMID [Suspect]
     Indication: TRACHEAL CANCER
     Dosage: 200-250MG, DAILY, ORAL
     Route: 048
     Dates: start: 20051201, end: 20060101
  5. THALOMID [Suspect]
     Indication: LUNG NEOPLASM MALIGNANT
     Dosage: 200-250MG, DAILY, ORAL
     Route: 048
     Dates: start: 20030922
  6. THALOMID [Suspect]
     Indication: METASTASES TO BONE
     Dosage: 200-250MG, DAILY, ORAL
     Route: 048
     Dates: start: 20030922
  7. THALOMID [Suspect]
     Indication: PROSTATE CANCER METASTATIC
     Dosage: 200-250MG, DAILY, ORAL
     Route: 048
     Dates: start: 20030922
  8. THALOMID [Suspect]
     Indication: TRACHEAL CANCER
     Dosage: 200-250MG, DAILY, ORAL
     Route: 048
     Dates: start: 20030922

REACTIONS (7)
  - CONDITION AGGRAVATED [None]
  - DYSPNOEA [None]
  - HYPOGLYCAEMIA [None]
  - METASTASES TO BONE [None]
  - NEUTROPENIA [None]
  - PROSTATE CANCER METASTATIC [None]
  - RENAL FAILURE [None]
